FAERS Safety Report 6898433-7 (Version None)
Quarter: 2010Q3

REPORT INFORMATION
  Report Type: 
  Country: None (occurrence: None)
  Receive Date: 20100802
  Receipt Date: 20071020
  Transmission Date: 20110219
  Serious: No
  Sender: FDA-Public Use
  Company Number: US-PFIZER INC-2007069798

PATIENT
  Sex: Male
  Weight: 68.2 kg

DRUGS (3)
  1. LYRICA [Suspect]
     Indication: NEURALGIA
     Dates: start: 20070101
  2. PREVACID [Concomitant]
  3. PAXIL [Concomitant]

REACTIONS (7)
  - DYSPHONIA [None]
  - EAR DISCOMFORT [None]
  - GASTROOESOPHAGEAL REFLUX DISEASE [None]
  - HEADACHE [None]
  - PHARYNGITIS [None]
  - UPPER-AIRWAY COUGH SYNDROME [None]
  - VISION BLURRED [None]
